FAERS Safety Report 5800489-7 (Version None)
Quarter: 2008Q3

REPORT INFORMATION
  Report Type: 
  Country: None (occurrence: None)
  Receive Date: 20080703
  Receipt Date: 20080626
  Transmission Date: 20090109
  Serious: Yes (Other)
  Sender: FDA-Public Use
  Company Number: A0735909A

PATIENT
  Age: 32 Year
  Sex: Female

DRUGS (2)
  1. COMBIVIR [Suspect]
     Indication: ANTIRETROVIRAL THERAPY
     Dosage: 3TAB PER DAY
     Route: 048
  2. KALETRA [Concomitant]
     Indication: ANTIRETROVIRAL THERAPY
     Dosage: 999.6MG PER DAY
     Route: 048

REACTIONS (2)
  - ABORTION SPONTANEOUS [None]
  - DRUG EXPOSURE DURING PREGNANCY [None]
